FAERS Safety Report 8211077-X (Version None)
Quarter: 2012Q1

REPORT INFORMATION
  Report Type: 
  Country: None (occurrence: None)
  Receive Date: 20120315
  Receipt Date: 20120312
  Transmission Date: 20120608
  Serious: Yes (Death, Hospitalization, Other)
  Sender: FDA-Public Use
  Company Number: PHHY2011BR112125

PATIENT
  Sex: Male

DRUGS (3)
  1. FUROSEMIDE [Concomitant]
     Indication: PAIN
     Dosage: 1 DF, UNK
     Dates: start: 20111101
  2. SPIRIVA [Concomitant]
  3. FORMOTEROL FUMARATE [Suspect]
     Indication: CHRONIC OBSTRUCTIVE PULMONARY DISEASE
     Dosage: 1 DF, UNK

REACTIONS (6)
  - CHRONIC OBSTRUCTIVE PULMONARY DISEASE [None]
  - LUNG DISORDER [None]
  - THROMBOSIS [None]
  - DYSPNOEA [None]
  - BACTERIAL INFECTION [None]
  - RENAL IMPAIRMENT [None]
